FAERS Safety Report 19093789 (Version 1)
Quarter: 2021Q2

REPORT INFORMATION
  Report Type: Spontaneous
  Country: GB (occurrence: GB)
  Receive Date: 20210405
  Receipt Date: 20210405
  Transmission Date: 20210717
  Serious: Yes (Disabling, Other)
  Sender: FDA-Public Use
  Company Number: GB-ORGANON-O2104GBR000099

PATIENT
  Age: 25 Year
  Sex: Female
  Weight: 72 kg

DRUGS (5)
  1. CHLORPHENAMINE [Concomitant]
     Active Substance: CHLORPHENIRAMINE MALEATE
     Dosage: UNK
  2. CLOBETASONE [Suspect]
     Active Substance: CLOBETASONE
     Indication: ECZEMA
     Dosage: AS NECESSARY (PRN) TO AFFECTED AREAS
     Route: 061
     Dates: start: 2018, end: 20200327
  3. ELOCON [Suspect]
     Active Substance: MOMETASONE FUROATE
     Indication: ECZEMA
     Dosage: UP TO TWICE DAILY (USUALLY ONCE EVERY 1?2 DAYS)
     Route: 061
     Dates: start: 2016, end: 20200327
  4. HYDROXYZINE [Concomitant]
     Active Substance: HYDROXYZINE HYDROCHLORIDE
     Dosage: UNK
  5. MARVELON [Concomitant]
     Active Substance: DESOGESTREL\ETHINYL ESTRADIOL
     Dosage: UNK

REACTIONS (7)
  - Erythema [Unknown]
  - Skin exfoliation [Not Recovered/Not Resolved]
  - Neuralgia [Recovering/Resolving]
  - Eye swelling [Recovering/Resolving]
  - Burning sensation [Not Recovered/Not Resolved]
  - Lymphadenopathy [Recovering/Resolving]
  - Pruritus [Not Recovered/Not Resolved]

NARRATIVE: CASE EVENT DATE: 2017
